FAERS Safety Report 6902775-6 (Version None)
Quarter: 2010Q3

REPORT INFORMATION
  Report Type: 
  Country: None (occurrence: None)
  Receive Date: 20100803
  Receipt Date: 20080805
  Transmission Date: 20110219
  Serious: No
  Sender: FDA-Public Use
  Company Number: US-PFIZER INC-2008066396

PATIENT
  Sex: Male
  Weight: 79.5 kg

DRUGS (5)
  1. LYRICA [Suspect]
     Route: 048
     Dates: start: 20080801, end: 20080801
  2. LIPITOR [Concomitant]
     Dates: start: 19970101
  3. BETIMOL [Concomitant]
  4. LUMIGAN [Concomitant]
  5. BENAZEPRIL [Concomitant]

REACTIONS (1)
  - EYE PAIN [None]
